FAERS Safety Report 6756367-2 (Version None)
Quarter: 2010Q2

REPORT INFORMATION
  Report Type: 
  Country: None (occurrence: None)
  Receive Date: 20100604
  Receipt Date: 20100526
  Transmission Date: 20101027
  Serious: Yes (Hospitalization, Other)
  Sender: FDA-Public Use
  Company Number: US-ROCHE-706973

PATIENT
  Sex: Female
  Weight: 91.7 kg

DRUGS (5)
  1. BEVACIZUMAB [Suspect]
     Indication: GLIOBLASTOMA
     Route: 042
     Dates: start: 20100407, end: 20100421
  2. TEMODAR [Suspect]
     Indication: GLIOBLASTOMA
     Route: 048
     Dates: start: 20100407, end: 20100411
  3. TOPOTECAN [Suspect]
     Indication: GLIOBLASTOMA
     Dosage: DOSE REPORTED AS 5 DAYS.
     Route: 048
     Dates: start: 20100408, end: 20100412
  4. TOPROL-XL [Concomitant]
     Route: 048
  5. ZOLOFT [Concomitant]
     Route: 048

REACTIONS (4)
  - FEBRILE NEUTROPENIA [None]
  - MENTAL STATUS CHANGES [None]
  - OESOPHAGITIS [None]
  - SEPSIS [None]
